FAERS Safety Report 19041311 (Version 1)
Quarter: 2021Q1

REPORT INFORMATION
  Report Type: Spontaneous
  Country: US (occurrence: US)
  Receive Date: 20210323
  Receipt Date: 20210323
  Transmission Date: 20210420
  Serious: No
  Sender: FDA-Public Use
  Company Number: US-QILU PHARMACEUTICAL CO.LTD.-QLU-000133-2020

PATIENT
  Age: 35 Year
  Sex: Female
  Weight: 56.69 kg

DRUGS (3)
  1. KLONOPIN [Concomitant]
     Active Substance: CLONAZEPAM
     Indication: PRODUCT USED FOR UNKNOWN INDICATION
     Dosage: UNK, PRN (AS NEEDED)
     Route: 065
  2. WELLBUTRIN [Concomitant]
     Active Substance: BUPROPION HYDROCHLORIDE
     Indication: PRODUCT USED FOR UNKNOWN INDICATION
     Dosage: UNK
     Route: 065
  3. OLANZAPINE. [Suspect]
     Active Substance: OLANZAPINE
     Indication: BIPOLAR II DISORDER
     Dosage: 5 MILLIGRAM, QD
     Route: 048
     Dates: start: 20200401, end: 20200422

REACTIONS (5)
  - Product substitution issue [Unknown]
  - Hyperhidrosis [Recovered/Resolved]
  - Skin odour abnormal [Recovered/Resolved]
  - Product odour abnormal [Recovered/Resolved]
  - Suspected product contamination [Recovered/Resolved]

NARRATIVE: CASE EVENT DATE: 20200401
